FAERS Safety Report 23198174 (Version 2)
Quarter: 2023Q4

REPORT INFORMATION
  Report Type: Spontaneous
  Country: US (occurrence: None)
  Receive Date: 20231117
  Receipt Date: 20231212
  Transmission Date: 20240109
  Serious: Yes (Other)
  Sender: FDA-Public Use
  Company Number: 2023A259550

PATIENT
  Sex: Female

DRUGS (1)
  1. SEROQUEL [Suspect]
     Active Substance: QUETIAPINE FUMARATE
     Route: 048

REACTIONS (11)
  - Cerebrovascular accident [Unknown]
  - Palpitations [Unknown]
  - Drug ineffective [Unknown]
  - Initial insomnia [Unknown]
  - Gait inability [Unknown]
  - General physical health deterioration [Unknown]
  - Fatigue [Unknown]
  - Wrong technique in product usage process [Unknown]
  - Incorrect dose administered [Unknown]
  - Product use issue [Unknown]
  - Product measured potency issue [Unknown]
